FAERS Safety Report 8567844-6 (Version None)
Quarter: 2012Q3

REPORT INFORMATION
  Report Type: 
  Country: None (occurrence: None)
  Receive Date: 20120803
  Receipt Date: 20120725
  Transmission Date: 20120928
  Serious: Yes (Other)
  Sender: FDA-Public Use
  Company Number: JP-ASTRAZENECA-2012SE32146

PATIENT
  Age: 82 Year
  Sex: Male
  Weight: 69 kg

DRUGS (11)
  1. DOXAZOSIN MESYLATE [Concomitant]
     Indication: HYPERTENSION
     Route: 065
     Dates: start: 20120406
  2. NEXIUM [Suspect]
     Indication: GASTROOESOPHAGEAL REFLUX DISEASE
     Route: 048
     Dates: end: 20120423
  3. AMLODIPINE [Concomitant]
     Indication: HYPERTENSION
     Route: 065
     Dates: start: 20090601
  4. ALLOPURINOL [Concomitant]
     Indication: HYPERURICAEMIA
     Route: 065
     Dates: start: 20090601, end: 20120423
  5. ARTIST [Concomitant]
     Indication: HYPERTENSION
     Route: 065
     Dates: start: 20110404
  6. TOUGHMAC E [Concomitant]
     Indication: GASTRITIS
     Route: 048
     Dates: start: 20090601
  7. FLIVAS [Concomitant]
     Indication: BENIGN PROSTATIC HYPERPLASIA
     Route: 065
     Dates: start: 20090601
  8. ALPRAZOLAM [Concomitant]
     Indication: INSOMNIA
     Route: 065
     Dates: start: 20090601
  9. AVAPRO [Concomitant]
     Indication: HYPERTENSION
     Route: 065
     Dates: start: 20110531
  10. LASIX [Concomitant]
     Indication: OEDEMA
     Route: 065
     Dates: start: 20111024
  11. TRICHLORMETHIAZIDE [Concomitant]
     Indication: OEDEMA
     Route: 065
     Dates: start: 20120116

REACTIONS (1)
  - THROMBOCYTOPENIA [None]
